FAERS Safety Report 16301948 (Version 2)
Quarter: 2021Q3

REPORT INFORMATION
  Report Type: Spontaneous
  Country: US (occurrence: US)
  Receive Date: 20190512
  Receipt Date: 20210828
  Transmission Date: 20211014
  Serious: Yes (Other)
  Sender: FDA-Public Use
  Company Number: PHEH2019US020250

PATIENT
  Sex: Male

DRUGS (1)
  1. TASIGNA [Suspect]
     Active Substance: NILOTINIB
     Indication: CHRONIC MYELOID LEUKAEMIA
     Dosage: 1 DF, BID
     Route: 048

REACTIONS (14)
  - Neuromyopathy [Unknown]
  - Cerebrovascular accident [Unknown]
  - Dyslipidaemia [Unknown]
  - Pain in extremity [Unknown]
  - Neuropathy peripheral [Unknown]
  - Vertigo [Unknown]
  - Emotional distress [Unknown]
  - Depression [Unknown]
  - Arteriosclerosis [Unknown]
  - Pain [Unknown]
  - Syncope [Unknown]
  - Injury [Unknown]
  - Anxiety [Unknown]
  - Blindness [Unknown]

NARRATIVE: CASE EVENT DATE: 2016
